FAERS Safety Report 10065487 (Version 2)
Quarter: 2014Q2

REPORT INFORMATION
  Report Type: Spontaneous
  Country: FR (occurrence: FR)
  Receive Date: 20140408
  Receipt Date: 20140521
  Transmission Date: 20141212
  Serious: Yes (Life-Threatening)
  Sender: FDA-Public Use
  Company Number: PHHY2014FR040667

PATIENT
  Age: 27 Year
  Sex: Male

DRUGS (12)
  1. LAMPRENE [Suspect]
     Indication: TUBERCULOSIS
     Dosage: 100 MG, QD
     Route: 048
     Dates: start: 20140128
  2. LAMPRENE [Suspect]
     Dosage: 50 MG, QD
     Dates: start: 20140218
  3. AMIKACINE [Suspect]
     Dosage: 900 MG, QD
     Route: 042
     Dates: start: 20140128
  4. AMIKACINE [Suspect]
     Dosage: 600 MG, QD
     Route: 042
     Dates: start: 20140128
  5. AMIKACINE [Suspect]
     Dosage: DOSE CHANGED
  6. AMIKACINE [Suspect]
     Dosage: 500 MG, QD
     Route: 042
  7. BEDAQUILINE [Suspect]
     Dosage: 400 MG, QD
     Route: 048
     Dates: start: 20140128
  8. BEDAQUILINE [Suspect]
     Dosage: 200 MG, QD
     Route: 048
  9. TAVANIC [Suspect]
     Dosage: 1 G, QD, (1000 MG)
     Route: 048
     Dates: start: 20140207
  10. IZILOX [Suspect]
     Dosage: UNK UKN, UNK
     Route: 048
     Dates: start: 20140129, end: 20140207
  11. CYCLOSERINE [Suspect]
     Dosage: 250 MG, QD
     Route: 048
     Dates: start: 20140128
  12. ZYVOXID [Suspect]
     Dosage: 600 MG, QD
     Route: 048
     Dates: start: 20140128

REACTIONS (1)
  - Electrocardiogram QT prolonged [Recovered/Resolved]
